FAERS Safety Report 8180287-2 (Version None)
Quarter: 2012Q1

REPORT INFORMATION
  Report Type: 
  Country: None (occurrence: None)
  Receive Date: 20120302
  Receipt Date: 20120228
  Transmission Date: 20120608
  Serious: Yes (Life-Threatening)
  Sender: FDA-Public Use
  Company Number: FR-SANOFI-AVENTIS-2012SA013328

PATIENT
  Age: 86 Year
  Sex: Female

DRUGS (5)
  1. ROPIVACAINE HYDROCHLORIDE [Suspect]
     Route: 042
     Dates: start: 20120117, end: 20120117
  2. LOVENOX [Suspect]
     Route: 058
     Dates: start: 20120117, end: 20120117
  3. ACETAMINOPHEN [Suspect]
     Route: 042
     Dates: start: 20120117, end: 20120117
  4. CEFAZOLIN [Suspect]
     Route: 042
     Dates: start: 20120117, end: 20120118
  5. ONDANSETRON [Suspect]
     Route: 042
     Dates: start: 20120117, end: 20120117

REACTIONS (2)
  - ERYTHEMA [None]
  - BRONCHOSPASM [None]
